FAERS Safety Report 19676008 (Version 1)
Quarter: 2021Q3

REPORT INFORMATION
  Report Type: Report from Study
  Country: IN (occurrence: IN)
  Receive Date: 20210809
  Receipt Date: 20210809
  Transmission Date: 20211014
  Serious: Yes (Other)
  Sender: FDA-Public Use
  Company Number: NVSC2020IN240966

PATIENT
  Age: 54 Year
  Sex: Male

DRUGS (3)
  1. REVOLADE [Suspect]
     Active Substance: ELTROMBOPAG OLAMINE
     Indication: APLASTIC ANAEMIA
     Dosage: 50 MG, QD
     Route: 065
     Dates: start: 20191114, end: 20200801
  2. REVOLADE [Suspect]
     Active Substance: ELTROMBOPAG OLAMINE
     Dosage: 50 MG, QD
     Route: 065
     Dates: start: 20200822, end: 202012
  3. REVOLADE [Suspect]
     Active Substance: ELTROMBOPAG OLAMINE
     Dosage: 50 MG, QD
     Route: 048
     Dates: end: 202107

REACTIONS (4)
  - Hepatic infection [Unknown]
  - Vomiting [Recovered/Resolved]
  - Blood count abnormal [Unknown]
  - Product dose omission issue [Unknown]

NARRATIVE: CASE EVENT DATE: 202008
